FAERS Safety Report 8051333-1 (Version None)
Quarter: 2012Q1

REPORT INFORMATION
  Report Type: 
  Country: None (occurrence: None)
  Receive Date: 20120117
  Receipt Date: 20120110
  Transmission Date: 20120608
  Serious: Yes (Hospitalization)
  Sender: FDA-Public Use
  Company Number: US-ROCHE-1019564

PATIENT
  Sex: Male

DRUGS (1)
  1. ZELBORAF [Suspect]
     Indication: PRODUCT USED FOR UNKNOWN INDICATION
     Route: 065

REACTIONS (5)
  - PULMONARY THROMBOSIS [None]
  - VOMITING [None]
  - LACRIMATION INCREASED [None]
  - PAIN IN EXTREMITY [None]
  - NEOPLASM MALIGNANT [None]
